FAERS Safety Report 6627755-X (Version None)
Quarter: 2010Q1

REPORT INFORMATION
  Report Type: 
  Country: None (occurrence: None)
  Receive Date: 20100301
  Receipt Date: 20090607
  Transmission Date: 20100710
  Serious: Yes (Death)
  Sender: FDA-Public Use
  Company Number: RB-16535-2009

PATIENT
  Age: 41 Year
  Sex: Male

DRUGS (6)
  1. BUPRENORPHINE [Suspect]
     Indication: DRUG USE FOR UNKNOWN INDICATION
  2. COCAINE [Suspect]
     Indication: DRUG USE FOR UNKNOWN INDICATION
  3. SEROQUEL [Suspect]
     Indication: DRUG USE FOR UNKNOWN INDICATION
  4. PROZAC [Suspect]
     Indication: DRUG USE FOR UNKNOWN INDICATION
  5. LAMICTAL CD [Suspect]
     Indication: DRUG USE FOR UNKNOWN INDICATION
  6. AFRIN [Concomitant]

REACTIONS (1)
  - ACCIDENT [None]
